FAERS Safety Report 8214749-6 (Version None)
Quarter: 2012Q1

REPORT INFORMATION
  Report Type: 
  Country: None (occurrence: None)
  Receive Date: 20120316
  Receipt Date: 20120309
  Transmission Date: 20120608
  Serious: Yes (Other)
  Sender: FDA-Public Use
  Company Number: DE-B.I. PHARMACEUTICALS,INC./RIDGEFIELD-2012-DE-00703DE

PATIENT
  Age: 78 Year
  Sex: Male
  Weight: 91 kg

DRUGS (1)
  1. PRADAXA [Suspect]
     Indication: ATRIAL FIBRILLATION
     Dosage: 220 MG
     Dates: start: 20120305, end: 20120307

REACTIONS (4)
  - PULMONARY HAEMORRHAGE [None]
  - HAEMOPTYSIS [None]
  - HAEMOGLOBIN DECREASED [None]
  - RESPIRATORY DISTRESS [None]
